FAERS Safety Report 17142220 (Version 1)
Quarter: 2019Q4

REPORT INFORMATION
  Report Type: Spontaneous
  Country: MY (occurrence: MY)
  Receive Date: 20191211
  Receipt Date: 20191211
  Transmission Date: 20200122
  Serious: Yes (Other)
  Sender: FDA-Public Use
  Company Number: MY-FRESENIUS KABI-FK201913559

PATIENT
  Age: 3 Year
  Sex: Male

DRUGS (1)
  1. METHOTREXATE INJECTION, USP [Suspect]
     Active Substance: METHOTREXATE
     Indication: ACUTE LYMPHOCYTIC LEUKAEMIA
     Route: 041

REACTIONS (5)
  - Periodontal inflammation [Recovered/Resolved]
  - Vomiting [Recovered/Resolved]
  - Blood creatinine increased [Recovered/Resolved]
  - Alanine aminotransferase increased [Recovered/Resolved]
  - Pyrexia [Recovered/Resolved]
